FAERS Safety Report 7040382-8 (Version None)
Quarter: 2010Q4

REPORT INFORMATION
  Report Type: 
  Country: None (occurrence: None)
  Receive Date: 20101008
  Receipt Date: 20101008
  Transmission Date: 20110411
  Serious: Yes (Hospitalization)
  Sender: FDA-Public Use
  Company Number: None

PATIENT
  Sex: Female
  Weight: 61.1 kg

DRUGS (3)
  1. BENDAMUSTINE [Suspect]
     Indication: SMALL CELL LUNG CANCER STAGE UNSPECIFIED
     Dosage: 144 MG D 1+2 EVERY 21 D IV
     Route: 042
     Dates: start: 20100715, end: 20100914
  2. ADVIAR [Concomitant]
  3. GLIMEPIRIDE [Concomitant]

REACTIONS (1)
  - PNEUMONIA [None]
